FAERS Safety Report 12975862 (Version 1)
Quarter: 2016Q4

REPORT INFORMATION
  Report Type: Spontaneous
  Country: SE (occurrence: SE)
  Receive Date: 20161125
  Receipt Date: 20161125
  Transmission Date: 20170207
  Serious: Yes (Other)
  Sender: FDA-Public Use
  Company Number: SE-JNJFOC-20161124899

PATIENT

DRUGS (1)
  1. YONDELIS [Suspect]
     Active Substance: TRABECTEDIN
     Indication: SOFT TISSUE SARCOMA
     Route: 042

REACTIONS (1)
  - Brain neoplasm malignant [Unknown]
